FAERS Safety Report 20665194 (Version 2)
Quarter: 2022Q2

REPORT INFORMATION
  Report Type: Spontaneous
  Country: KR (occurrence: KR)
  Receive Date: 20220401
  Receipt Date: 20220405
  Transmission Date: 20220721
  Serious: Yes (Death)
  Sender: FDA-Public Use
  Company Number: KR-BIOGEN-2022BI01110861

PATIENT
  Age: 5 Year
  Sex: Female

DRUGS (1)
  1. NUSINERSEN [Suspect]
     Active Substance: NUSINERSEN
     Indication: Spinal muscular atrophy
     Route: 065
     Dates: start: 20180409, end: 20220208

REACTIONS (1)
  - Sudden death [Fatal]

NARRATIVE: CASE EVENT DATE: 20220325
